FAERS Safety Report 24725004 (Version 4)
Quarter: 2025Q2

REPORT INFORMATION
  Report Type: Spontaneous
  Country: US (occurrence: US)
  Receive Date: 20241212
  Receipt Date: 20250415
  Transmission Date: 20250717
  Serious: No
  Sender: SANOFI AVENTIS
  Company Number: US-SA-2024SA365320

PATIENT
  Age: 64 Year
  Sex: Female

DRUGS (34)
  1. REZUROCK [Suspect]
     Active Substance: BELUMOSUDIL
     Indication: Graft versus host disease
     Dosage: 200 MG, QD
     Route: 048
     Dates: start: 202402
  2. BUDESONIDE [Suspect]
     Active Substance: BUDESONIDE
  3. METHYLPREDNISOLONE [Concomitant]
     Active Substance: METHYLPREDNISOLONE
  4. ZOLPIDEM [Concomitant]
     Active Substance: ZOLPIDEM TARTRATE
  5. ZOFRAN [Concomitant]
     Active Substance: ONDANSETRON HYDROCHLORIDE
  6. TYLENOL [Concomitant]
     Active Substance: ACETAMINOPHEN
  7. AMOXICILLIN [Concomitant]
     Active Substance: AMOXICILLIN
  8. METOPROLOL SUCCINATE [Concomitant]
     Active Substance: METOPROLOL SUCCINATE
  9. VITAMIN D3 [Concomitant]
     Active Substance: CHOLECALCIFEROL
  10. ORENCIA [Concomitant]
     Active Substance: ABATACEPT
  11. CALCIUM [Concomitant]
     Active Substance: CALCIUM
  12. CALCIUM [Concomitant]
     Active Substance: CALCIUM
  13. XANAX [Concomitant]
     Active Substance: ALPRAZOLAM
  14. LOSARTAN [Concomitant]
     Active Substance: LOSARTAN
  15. NITAZOXANIDE [Concomitant]
     Active Substance: NITAZOXANIDE
  16. INGREZZA [Concomitant]
     Active Substance: VALBENAZINE DITOSYLATE
  17. VITAMINS [Concomitant]
     Active Substance: VITAMINS
  18. VALACYCLOVIR [Concomitant]
     Active Substance: VALACYCLOVIR HYDROCHLORIDE
  19. ESCITALOPRAM [Concomitant]
     Active Substance: ESCITALOPRAM OXALATE
  20. ESCITALOPRAM [Concomitant]
     Active Substance: ESCITALOPRAM OXALATE
  21. BACTRIM DS [Concomitant]
     Active Substance: SULFAMETHOXAZOLE\TRIMETHOPRIM
  22. POSACONAZOLE [Concomitant]
     Active Substance: POSACONAZOLE
  23. BUSPIRONE [Concomitant]
     Active Substance: BUSPIRONE HYDROCHLORIDE
  24. BUSPIRONE [Concomitant]
     Active Substance: BUSPIRONE HYDROCHLORIDE
  25. LOSARTAN [Concomitant]
     Active Substance: LOSARTAN
  26. SODIUM CHLORIDE [Concomitant]
     Active Substance: SODIUM CHLORIDE
  27. ZETIA [Concomitant]
     Active Substance: EZETIMIBE
  28. TYLENOL EXTRA STRENGTH [Concomitant]
     Active Substance: ACETAMINOPHEN
  29. CLOBETASOL [Concomitant]
     Active Substance: CLOBETASOL
  30. CLOBETASOL [Concomitant]
     Active Substance: CLOBETASOL
  31. NYSTATIN [Concomitant]
     Active Substance: NYSTATIN
  32. REFRESH CLASSIC [Concomitant]
     Active Substance: POLYVINYL ALCOHOL\POVIDONE
  33. CALCIUM CARBONATE [Concomitant]
     Active Substance: CALCIUM CARBONATE
  34. RESTASIS [Concomitant]
     Active Substance: CYCLOSPORINE

REACTIONS (7)
  - Gastrointestinal disorder [Recovering/Resolving]
  - Malaise [Recovering/Resolving]
  - Disease progression [Recovering/Resolving]
  - Epstein-Barr virus infection [Not Recovered/Not Resolved]
  - Nausea [Recovering/Resolving]
  - Dyspnoea [Unknown]
  - Vomiting [Recovering/Resolving]
